FAERS Safety Report 9170545 (Version 1)
Quarter: 2013Q1

REPORT INFORMATION
  Report Type: Spontaneous
  Country: DE (occurrence: DE)
  Receive Date: 20130319
  Receipt Date: 20130319
  Transmission Date: 20140127
  Serious: Yes (Other)
  Sender: FDA-Public Use
  Company Number: DE-JNJFOC-20130108067

PATIENT
  Age: 31 Year
  Sex: Female

DRUGS (9)
  1. TRAMAL TROPFEN [Suspect]
     Indication: PRODUCT USED FOR UNKNOWN INDICATION
     Route: 048
     Dates: start: 20130106, end: 20130106
  2. TRANYLCYPROMINE SULFATE [Suspect]
     Indication: PRODUCT USED FOR UNKNOWN INDICATION
     Route: 065
  3. ANTIDEPRESSANTS [Concomitant]
     Indication: PRODUCT USED FOR UNKNOWN INDICATION
     Route: 065
  4. BENZODIAZEPINE DERIVATIVES [Concomitant]
     Route: 065
  5. TILIDIN [Concomitant]
     Route: 048
  6. DOMINAL [Concomitant]
     Route: 048
  7. SEROQUEL [Concomitant]
     Route: 048
  8. TRUXAL [Concomitant]
     Route: 048
  9. NOVALGIN [Concomitant]
     Route: 048

REACTIONS (5)
  - Drug abuse [Unknown]
  - Serotonin syndrome [Recovered/Resolved]
  - Drug interaction [Recovered/Resolved]
  - Hyperreflexia [Not Recovered/Not Resolved]
  - Drug prescribing error [Recovered/Resolved]
